FAERS Safety Report 6724407-2 (Version None)
Quarter: 2010Q2

REPORT INFORMATION
  Report Type: 
  Country: None (occurrence: None)
  Receive Date: 20100513
  Receipt Date: 20100506
  Transmission Date: 20101027
  Serious: Yes (Life-Threatening, Disabling)
  Sender: FDA-Public Use
  Company Number: GB-PFIZER INC-2010057048

PATIENT
  Age: 65 Year
  Sex: Male
  Weight: 70.9 kg

DRUGS (5)
  1. ATORVASTATIN CALCIUM [Suspect]
     Indication: CARDIOVASCULAR EVENT PROPHYLAXIS
     Dosage: 20 MG, UNK
     Route: 048
     Dates: start: 19980101, end: 20100314
  2. ACETYLSALICYLIC ACID [Concomitant]
     Indication: PERICARDITIS
     Dosage: 75 MG, UNK
     Route: 048
     Dates: start: 19980101
  3. ACETYLSALICYLIC ACID [Concomitant]
     Indication: PROPHYLAXIS
  4. ATENOLOL [Concomitant]
     Indication: PERICARDITIS
     Dosage: 25 MG, UNK
     Route: 048
     Dates: start: 19980101
  5. ATENOLOL [Concomitant]
     Indication: PROPHYLAXIS

REACTIONS (1)
  - INTERSTITIAL LUNG DISEASE [None]
